FAERS Safety Report 4566978-0 (Version None)
Quarter: 2005Q1

REPORT INFORMATION
  Report Type: 
  Country: None (occurrence: None)
  Receive Date: 20050201
  Receipt Date: 20040205
  Transmission Date: 20050727
  Serious: Yes (Other)
  Sender: FDA-Public Use
  Company Number: US-BRISTOL-MYERS SQUIBB COMPANY-12500393

PATIENT
  Age: 59 Year
  Sex: Female

DRUGS (6)
  1. STADOL [Suspect]
     Route: 045
     Dates: start: 19950328, end: 19971209
  2. PROMETHAZINE [Concomitant]
  3. HYDROCODONE + ACETAMINOPHEN [Concomitant]
  4. AMITRIPTYLINE [Concomitant]
  5. ULTRAM [Concomitant]
  6. OXYCONTIN [Concomitant]

REACTIONS (2)
  - DEPENDENCE [None]
  - DRUG WITHDRAWAL SYNDROME [None]
